FAERS Safety Report 9162646 (Version 3)
Quarter: 2013Q2

REPORT INFORMATION
  Report Type: Spontaneous
  Country: IT (occurrence: IT)
  Receive Date: 20130314
  Receipt Date: 20130422
  Transmission Date: 20140414
  Serious: Yes (Hospitalization)
  Sender: FDA-Public Use
  Company Number: IT-BRISTOL-MYERS SQUIBB COMPANY-17452087

PATIENT
  Age: 77 Year
  Sex: Male
  Weight: 65 kg

DRUGS (4)
  1. COUMADIN TABS 5 MG [Suspect]
     Indication: PROPHYLAXIS
     Dosage: 1 DF = 1 UNIT?INTERR 8FEB13
     Route: 048
     Dates: start: 20100101
  2. CARDIOASPIRIN [Suspect]
     Indication: PROPHYLAXIS
     Dosage: 1 UNIT?INTERR 8FEB13
     Route: 048
     Dates: start: 20100101
  3. PANTOPRAZOLE SODIUM [Concomitant]
     Dosage: 1 DF = 1 UNIT?TABS
     Route: 048
  4. FUROSEMIDE [Concomitant]
     Route: 048

REACTIONS (1)
  - Iron deficiency anaemia [Recovering/Resolving]
